FAERS Safety Report 7165593-2 (Version None)
Quarter: 2010Q4

REPORT INFORMATION
  Report Type: 
  Country: None (occurrence: None)
  Receive Date: 20101215
  Receipt Date: 20100126
  Transmission Date: 20110411
  Serious: Yes (Other)
  Sender: FDA-Public Use
  Company Number: US-AMGEN-QUU383654

PATIENT

DRUGS (4)
  1. ENBREL [Suspect]
     Indication: JUVENILE ARTHRITIS
     Dosage: 25 MG, 2 TIMES/WK
     Route: 058
     Dates: start: 20001001
  2. MELOXICAM [Concomitant]
     Dosage: UNK UNK, UNK
     Dates: start: 20090409
  3. METHOTREXATE [Concomitant]
     Dosage: UNK UNK, UNK
     Dates: start: 19991001
  4. FOLIC ACID [Concomitant]
     Dosage: UNK UNK, UNK
     Dates: start: 19991001

REACTIONS (2)
  - ARTHRITIS [None]
  - LYMPHADENOPATHY [None]
